APPROVED DRUG PRODUCT: ROPINIROLE HYDROCHLORIDE
Active Ingredient: ROPINIROLE HYDROCHLORIDE
Strength: EQ 1MG BASE
Dosage Form/Route: TABLET;ORAL
Application: A078881 | Product #003
Applicant: PHARMOBEDIENT CONSULTING LLC
Approved: May 5, 2008 | RLD: No | RS: No | Type: DISCN